FAERS Safety Report 7045809-3 (Version None)
Quarter: 2010Q4

REPORT INFORMATION
  Report Type: 
  Country: None (occurrence: None)
  Receive Date: 20101013
  Receipt Date: 20101013
  Transmission Date: 20110411
  Serious: Yes (Disabling)
  Sender: FDA-Public Use
  Company Number: None

PATIENT
  Age: 37 Year
  Sex: Female
  Weight: 113.3993 kg

DRUGS (4)
  1. ADENOSINE [Suspect]
     Indication: TACHYCARDIA
     Dosage: 6MG STAT IV BOLUS
     Route: 040
     Dates: start: 20101011, end: 20101011
  2. ALBUTEROL [Concomitant]
  3. METOPROLOL [Concomitant]
  4. EPINEPHRINE [Concomitant]

REACTIONS (6)
  - CHEST PAIN [None]
  - DEVICE OCCLUSION [None]
  - HEART RATE INCREASED [None]
  - PRODUCT QUALITY ISSUE [None]
  - RESPIRATORY DISTRESS [None]
  - SYRINGE ISSUE [None]
